FAERS Safety Report 18547679 (Version 2)
Quarter: 2022Q3

REPORT INFORMATION
  Report Type: Spontaneous
  Country: IT (occurrence: IT)
  Receive Date: 20201126
  Receipt Date: 20220905
  Transmission Date: 20221027
  Serious: Yes (Death, Life-Threatening, Hospitalization, Other)
  Sender: FDA-Public Use
  Company Number: IT-MLMSERVICE-20201106-2566771-1

PATIENT
  Age: 32 Year
  Sex: Female
  Weight: 76 kg

DRUGS (4)
  1. MYCOPHENOLATE MOFETIL [Suspect]
     Active Substance: MYCOPHENOLATE MOFETIL
     Indication: Immunosuppressant drug therapy
  2. CYCLOSPORINE [Suspect]
     Active Substance: CYCLOSPORINE
     Indication: Immunosuppressant drug therapy
     Dosage: PLASMATIC CYCLOSPORINE CONCENTRATION TARGET OF 200NG/ML
     Route: 042
  3. METHYLPREDNISOLONE [Suspect]
     Active Substance: METHYLPREDNISOLONE
     Indication: Immunosuppressant drug therapy
     Route: 042
  4. IMMUNOGLOBULINS [Concomitant]
     Indication: Antiviral prophylaxis
     Route: 042

REACTIONS (8)
  - Large intestine perforation [Recovering/Resolving]
  - Acute respiratory failure [Recovering/Resolving]
  - Cytomegalovirus infection [Recovering/Resolving]
  - Colitis [Recovering/Resolving]
  - Klebsiella infection [Fatal]
  - Peritonitis [Recovering/Resolving]
  - Wound dehiscence [Fatal]
  - Septic shock [Fatal]
